FAERS Safety Report 10224359 (Version 1)
Quarter: 2014Q2

REPORT INFORMATION
  Report Type: Spontaneous
  Country: US (occurrence: US)
  Receive Date: 20140609
  Receipt Date: 20140609
  Transmission Date: 20141212
  Serious: No
  Sender: FDA-Public Use
  Company Number: US-PFIZER INC-2014155142

PATIENT
  Age: 49 Year
  Sex: Female
  Weight: 62.5 kg

DRUGS (2)
  1. XALKORI [Suspect]
     Indication: LEIOMYOSARCOMA
     Dosage: 250 MG, 2X/DAY
     Route: 048
     Dates: start: 20140602
  2. COMPAZINE [Concomitant]
     Dosage: UNK

REACTIONS (2)
  - Off label use [Unknown]
  - Nausea [Unknown]
